FAERS Safety Report 4970964-6 (Version None)
Quarter: 2006Q2

REPORT INFORMATION
  Report Type: 
  Country: None (occurrence: None)
  Receive Date: 20060411
  Receipt Date: 20060411
  Transmission Date: 20061013
  Serious: Yes (Hospitalization)
  Sender: FDA-Public Use
  Company Number: None

PATIENT
  Sex: Female
  Weight: 69.0828 kg

DRUGS (1)
  1. ALOXI [Suspect]
     Indication: BREAST CANCER
     Dosage: 0.25 MG X 1 GIVEN IVPB
     Route: 040
     Dates: start: 20060314

REACTIONS (3)
  - DEHYDRATION [None]
  - HEADACHE [None]
  - NAUSEA [None]
